FAERS Safety Report 15651804 (Version 2)
Quarter: 2018Q4

REPORT INFORMATION
  Report Type: Spontaneous
  Country: US (occurrence: US)
  Receive Date: 20181123
  Receipt Date: 20181204
  Transmission Date: 20190205
  Serious: Yes (Disabling)
  Sender: FDA-Public Use
  Company Number: US-HORIZON-PEN-1274-2018

PATIENT
  Age: 66 Year
  Sex: Male

DRUGS (6)
  1. LUNESTA [Concomitant]
     Active Substance: ESZOPICLONE
  2. TRAMADOL. [Concomitant]
     Active Substance: TRAMADOL
  3. DEPLIN [Concomitant]
     Active Substance: LEVOMEFOLATE CALCIUM
  4. PENNSAID [Suspect]
     Active Substance: DICLOFENAC SODIUM
     Indication: REITER^S SYNDROME
     Dosage: BID
  5. LUVOX [Concomitant]
     Active Substance: FLUVOXAMINE MALEATE
  6. KLONOPIN [Concomitant]
     Active Substance: CLONAZEPAM

REACTIONS (7)
  - Insurance issue [Unknown]
  - Gait inability [Not Recovered/Not Resolved]
  - Impaired quality of life [Not Recovered/Not Resolved]
  - Pain [Not Recovered/Not Resolved]
  - Off label use [Unknown]
  - Therapy cessation [Unknown]
  - Myalgia [Unknown]

NARRATIVE: CASE EVENT DATE: 20181130
